FAERS Safety Report 10453072 (Version 2)
Quarter: 2015Q1

REPORT INFORMATION
  Report Type: Report from Study
  Country: FR (occurrence: FR)
  Receive Date: 20140915
  Receipt Date: 20150316
  Transmission Date: 20150720
  Serious: Yes (Other)
  Sender: FDA-Public Use
  Company Number: FR-GLAXOSMITHKLINE-B1032877A

PATIENT
  Age: 50 Year
  Sex: Male

DRUGS (5)
  1. SYMBICORT [Concomitant]
     Active Substance: BUDESONIDE\FORMOTEROL FUMARATE DIHYDRATE
  2. HYDROCORTISONE. [Concomitant]
     Active Substance: HYDROCORTISONE
  3. OFATUMUMAB [Suspect]
     Active Substance: OFATUMUMAB
     Indication: B-CELL LYMPHOMA
     Dates: start: 20120910
  4. METHYLPREDNISOLONE. [Suspect]
     Active Substance: METHYLPREDNISOLONE
     Indication: B-CELL LYMPHOMA
     Route: 042
     Dates: start: 20120910
  5. ZITHROMAX [Concomitant]
     Active Substance: AZITHROMYCIN DIHYDRATE

REACTIONS (1)
  - Osteonecrosis [Not Recovered/Not Resolved]

NARRATIVE: CASE EVENT DATE: 20140707
